FAERS Safety Report 8274055-0 (Version None)
Quarter: 2012Q2

REPORT INFORMATION
  Report Type: 
  Country: None (occurrence: None)
  Receive Date: 20120406
  Receipt Date: 20120406
  Transmission Date: 20120825
  Serious: No
  Sender: FDA-Public Use
  Company Number: None

PATIENT
  Sex: Female
  Weight: 76.6579 kg

DRUGS (1)
  1. CIPRO [Suspect]
     Indication: VOMITING
     Dosage: 400MG 12 HR IV
     Route: 042
     Dates: start: 20120321, end: 20120322

REACTIONS (2)
  - PRURITUS [None]
  - BLOOD TEST ABNORMAL [None]
